FAERS Safety Report 10010102 (Version 3)
Quarter: 2019Q3

REPORT INFORMATION
  Report Type: Spontaneous
  Country: US (occurrence: US)
  Receive Date: 20140312
  Receipt Date: 20190708
  Transmission Date: 20191004
  Serious: No
  Sender: FDA-Public Use
  Company Number: US-INCYTE CORPORATION-2013IN000413

PATIENT

DRUGS (3)
  1. JAKAFI [Suspect]
     Active Substance: RUXOLITINIB
     Dosage: 15 MILLIGRAM, BID
     Route: 048
  2. JAKAFI [Suspect]
     Active Substance: RUXOLITINIB
     Dosage: 15 MILLIGRAM, BID
     Route: 048
     Dates: start: 20170308
  3. JAKAFI [Suspect]
     Active Substance: RUXOLITINIB
     Indication: MYELOFIBROSIS
     Dosage: 20 MILLIGRAM, BID
     Route: 048
     Dates: start: 2012

REACTIONS (4)
  - Amnesia [Unknown]
  - Alopecia [Unknown]
  - Pruritus [Unknown]
  - Splenomegaly [Unknown]

NARRATIVE: CASE EVENT DATE: 201212
